FAERS Safety Report 4501593-6 (Version None)
Quarter: 2004Q3

REPORT INFORMATION
  Report Type: 
  Country: None (occurrence: None)
  Receive Date: 20040928
  Receipt Date: 20040831
  Transmission Date: 20050211
  Serious: No
  Sender: FDA-Public Use
  Company Number: 04P-163-0272031-00

PATIENT
  Age: 80 Year
  Sex: Female

DRUGS (8)
  1. HUMIRA [Suspect]
     Indication: RHEUMATOID ARTHRITIS
     Dosage: 40 MG 1 IN 2 WK SUBCUTANEOUS
     Route: 058
     Dates: start: 20040201, end: 20040718
  2. METHOTREXATE [Concomitant]
  3. HYDROXYCHLOROQUINE PHOSPHATE [Concomitant]
  4. BUCINDOLOL HYDROCHLORIDE [Concomitant]
  5. OMEPRAZOLE [Concomitant]
  6. ALENDRONATE SODIUM [Concomitant]
  7. ALPRAZOLAM [Concomitant]
  8. MULTI-VITAMINS [Concomitant]

REACTIONS (8)
  - ABDOMINAL DISTENSION [None]
  - CONSTIPATION [None]
  - FATIGUE [None]
  - PERINEAL PAIN [None]
  - RASH [None]
  - RASH MACULO-PAPULAR [None]
  - VAGINAL DISCHARGE [None]
  - WHITE BLOOD CELLS URINE POSITIVE [None]
